FAERS Safety Report 8296406-3 (Version None)
Quarter: 2012Q2

REPORT INFORMATION
  Report Type: 
  Country: None (occurrence: None)
  Receive Date: 20120418
  Receipt Date: 20120406
  Transmission Date: 20120825
  Serious: Yes (Hospitalization)
  Sender: FDA-Public Use
  Company Number: US-BRISTOL-MYERS SQUIBB COMPANY-16447229

PATIENT
  Age: 82 Year
  Sex: Male

DRUGS (4)
  1. GLYBURIDE [Suspect]
     Indication: TYPE 2 DIABETES MELLITUS
  2. SAXAGLIPTIN [Suspect]
     Indication: TYPE 2 DIABETES MELLITUS
     Route: 048
     Dates: start: 20110823
  3. INSULIN [Suspect]
     Indication: TYPE 2 DIABETES MELLITUS
     Dosage: 12 IU/U
  4. PLACEBO [Suspect]
     Indication: TYPE 2 DIABETES MELLITUS
     Route: 048
     Dates: start: 20110823

REACTIONS (5)
  - ESCHERICHIA TEST POSITIVE [None]
  - SPUTUM CULTURE POSITIVE [None]
  - CHRONIC OBSTRUCTIVE PULMONARY DISEASE [None]
  - ASTHENIA [None]
  - NEISSERIA TEST POSITIVE [None]
